FAERS Safety Report 13654838 (Version 6)
Quarter: 2017Q3

REPORT INFORMATION
  Report Type: Report from Study
  Country: US (occurrence: US)
  Receive Date: 20170615
  Receipt Date: 20170925
  Transmission Date: 20171127
  Serious: Yes (Hospitalization)
  Sender: FDA-Public Use
  Company Number: US-009507513-1705USA001274

PATIENT
  Age: 68 Year
  Sex: Female
  Weight: 55.4 kg

DRUGS (11)
  1. COREG [Concomitant]
     Active Substance: CARVEDILOL
     Indication: HYPERTENSION
     Dosage: 3.125 MG, QD
     Route: 048
     Dates: start: 20170214
  2. PEMBROLIZUMAB. [Suspect]
     Active Substance: PEMBROLIZUMAB
     Indication: HEPATOCELLULAR CARCINOMA
     Dosage: 200 MG, Q3W
     Route: 042
     Dates: start: 20170113, end: 20170317
  3. PEMBROLIZUMAB. [Suspect]
     Active Substance: PEMBROLIZUMAB
     Dosage: 200 MG, Q3W
     Route: 042
     Dates: start: 20170407, end: 20170407
  4. FUROSEMIDE. [Suspect]
     Active Substance: FUROSEMIDE
     Indication: OEDEMA
     Dosage: 40 MG, ONCE
     Route: 048
     Dates: start: 20170203
  5. PRINIVIL [Concomitant]
     Active Substance: LISINOPRIL
     Indication: HYPERTENSION
     Dosage: 5 MG, QD; FORMULATION: PILL
     Route: 048
     Dates: start: 20161128
  6. LOPERAMIDE [Concomitant]
     Active Substance: LOPERAMIDE
     Indication: DIARRHOEA
     Dosage: TOTAL DAILY DOSE: 2 MG, PRN
     Route: 048
     Dates: start: 20170203
  7. K-TAB [Concomitant]
     Active Substance: POTASSIUM CHLORIDE
     Indication: HYPOKALAEMIA
     Dosage: 20 MEQ, ONCE
     Route: 048
     Dates: start: 20170203
  8. CLONIDINE. [Concomitant]
     Active Substance: CLONIDINE
     Indication: HYPERTENSION
     Dosage: 0.1 MG, BID; FORMULATION: PILL
     Route: 048
     Dates: start: 20161128
  9. ONDANSETRON [Concomitant]
     Active Substance: ONDANSETRON
     Indication: NAUSEA
     Dosage: 8 MG, ONCE
     Route: 048
     Dates: start: 20170203
  10. MEGACE [Concomitant]
     Active Substance: MEGESTROL ACETATE
     Indication: ROUTINE HEALTH MAINTENANCE
     Dosage: TOTAL DAILY DOSE: 40 MG, PRN
     Route: 048
     Dates: start: 20170207
  11. PEMBROLIZUMAB. [Suspect]
     Active Substance: PEMBROLIZUMAB
     Dosage: 200 MG, Q3W
     Route: 042
     Dates: start: 20170428

REACTIONS (1)
  - Chronic left ventricular failure [Recovered/Resolved]

NARRATIVE: CASE EVENT DATE: 20170410
